FAERS Safety Report 10925157 (Version 2)
Quarter: 2015Q2

REPORT INFORMATION
  Report Type: Spontaneous
  Country: US (occurrence: US)
  Receive Date: 20150318
  Receipt Date: 20150524
  Transmission Date: 20150821
  Serious: No
  Sender: FDA-Public Use
  Company Number: US-JNJFOC-20131012649

PATIENT
  Age: 76 Year
  Sex: Female
  Weight: 79.38 kg

DRUGS (14)
  1. NIZORAL [Suspect]
     Active Substance: KETOCONAZOLE
     Indication: PRURITUS
     Dosage: 1 APPLICATION/SOLUTION/ 2%/2 OR 3 TIMES A WEEK/TOPICAL
     Route: 061
     Dates: start: 20131010, end: 201310
  2. ESTRACE [Concomitant]
     Active Substance: ESTRADIOL
     Indication: DRY SKIN
     Dosage: U/CREAM/U/2 OR 3 TIMES WEEKLY OR ONCE DAILY AS NEEDED/VAGINALLY
     Route: 067
  3. VENTOLIN [Concomitant]
     Active Substance: ALBUTEROL SULFATE
     Indication: ASTHMA
     Route: 055
     Dates: start: 2000
  4. ACETAMINOPHEN. [Concomitant]
     Active Substance: ACETAMINOPHEN
     Indication: PAIN
     Route: 048
     Dates: start: 2012
  5. IMODIUM [Concomitant]
     Active Substance: LOPERAMIDE HYDROCHLORIDE
     Indication: IRRITABLE BOWEL SYNDROME
     Route: 048
  6. NUVIGIL [Concomitant]
     Active Substance: ARMODAFINIL
     Indication: SLEEP APNOEA SYNDROME
     Dosage: 125MG/TABLET/250MG/ONCE DAILY/ORAL
     Route: 048
     Dates: start: 2011
  7. NUVIGIL [Concomitant]
     Active Substance: ARMODAFINIL
     Indication: SOMNOLENCE
     Dosage: 125MG/TABLET/250MG/ONCE DAILY/ORAL
     Route: 048
     Dates: start: 2011
  8. METRONIDAZOLE. [Concomitant]
     Active Substance: METRONIDAZOLE
     Indication: ROSACEA
     Route: 065
     Dates: start: 2008
  9. LEVOTHYROXINE [Concomitant]
     Active Substance: LEVOTHYROXINE
     Indication: HYPOTHYROIDISM
     Dosage: LESS THAN 1.5 MG
     Route: 048
     Dates: start: 1956
  10. SINGULAIR [Concomitant]
     Active Substance: MONTELUKAST SODIUM
     Indication: MULTIPLE ALLERGIES
     Route: 048
     Dates: start: 2000
  11. ESTRACE [Concomitant]
     Active Substance: ESTRADIOL
     Indication: HORMONE REPLACEMENT THERAPY
     Dosage: U/CREAM/U/2 OR 3 TIMES WEEKLY OR ONCE DAILY AS NEEDED/VAGINALLY
     Route: 067
  12. LIDEX [Concomitant]
     Active Substance: FLUOCINONIDE
     Indication: SKIN DISORDER
     Route: 065
     Dates: start: 2000
  13. FLUTICASONE [Concomitant]
     Active Substance: FLUTICASONE\FLUTICASONE PROPIONATE
     Indication: MULTIPLE ALLERGIES
     Dosage: 100MCG/SOLUTION/50MCG/ONCE DAILY/NASAL
     Route: 045
     Dates: start: 2000
  14. TOBRADEX [Concomitant]
     Active Substance: DEXAMETHASONE\TOBRAMYCIN
     Indication: EYELIDS PRURITUS
     Route: 047
     Dates: start: 20130410

REACTIONS (1)
  - Pruritus [Not Recovered/Not Resolved]

NARRATIVE: CASE EVENT DATE: 20131010
